FAERS Safety Report 4604609-1 (Version None)
Quarter: 2005Q2

REPORT INFORMATION
  Report Type: 
  Country: None (occurrence: None)
  Receive Date: 20050216
  Receipt Date: 20040127
  Transmission Date: 20051028
  Serious: Yes (Hospitalization)
  Sender: FDA-Public Use
  Company Number: K200400108

PATIENT
  Age: 56 Year
  Sex: Female

DRUGS (1)
  1. LORABID [Suspect]
     Indication: INFECTION
     Dosage: 200 MG, SINGLE, ORAL
     Route: 048
     Dates: start: 20040127, end: 20040127

REACTIONS (4)
  - DIZZINESS [None]
  - NAUSEA [None]
  - PRURITUS [None]
  - RASH MACULAR [None]
